FAERS Safety Report 6870958-X (Version None)
Quarter: 2010Q3

REPORT INFORMATION
  Report Type: 
  Country: None (occurrence: None)
  Receive Date: 20100723
  Receipt Date: 20100716
  Transmission Date: 20110219
  Serious: Yes (Death, Hospitalization)
  Sender: FDA-Public Use
  Company Number: JP-ELI_LILLY_AND_COMPANY-JP201007003505

PATIENT
  Age: 57 Year
  Sex: Male
  Weight: 59 kg

DRUGS (14)
  1. PEMETREXED [Suspect]
     Indication: LUNG ADENOCARCINOMA STAGE IV
     Dosage: 500 MG/M2, OTHER
     Route: 042
     Dates: start: 20100122, end: 20100310
  2. CARBOPLATIN [Concomitant]
     Indication: LUNG ADENOCARCINOMA STAGE IV
     Dosage: 550 MG, UNK
     Route: 042
     Dates: start: 20100122, end: 20100310
  3. FOLIAMIN [Concomitant]
     Dosage: 0.5 MG, DAILY (1/D)
     Route: 048
     Dates: start: 20100115, end: 20100410
  4. METHYCOBAL [Concomitant]
     Dosage: 1 MG, UNK
     Route: 030
     Dates: start: 20100115, end: 20100115
  5. MEDICON [Concomitant]
     Route: 048
     Dates: start: 20100104, end: 20100118
  6. DASEN [Concomitant]
     Route: 048
     Dates: start: 20100104, end: 20100118
  7. MAGMITT [Concomitant]
     Route: 048
     Dates: start: 20100112, end: 20100409
  8. CODEINE PHOSPHATE [Concomitant]
     Route: 048
     Dates: start: 20100112, end: 20100409
  9. MYSLEE [Concomitant]
     Route: 048
     Dates: start: 20100118, end: 20100409
  10. AUZEI [Concomitant]
     Route: 065
     Dates: start: 20100118, end: 20100409
  11. TRANSAMIN [Concomitant]
     Route: 065
     Dates: start: 20100118, end: 20100409
  12. MUCOSOLVAN [Concomitant]
     Route: 048
     Dates: start: 20100118, end: 20100409
  13. PROTECADIN [Concomitant]
     Route: 048
     Dates: start: 20100317, end: 20100409
  14. PENTCILLIN [Concomitant]
     Route: 042
     Dates: start: 20100410, end: 20100410

REACTIONS (5)
  - BLOOD CREATININE INCREASED [None]
  - DISSEMINATED INTRAVASCULAR COAGULATION [None]
  - HEPATIC FUNCTION ABNORMAL [None]
  - INTERSTITIAL LUNG DISEASE [None]
  - PLATELET COUNT DECREASED [None]
